FAERS Safety Report 9746213 (Version 1)
Quarter: 2013Q4

REPORT INFORMATION
  Report Type: Spontaneous
  Country: GB (occurrence: None)
  Receive Date: 20131205
  Receipt Date: 20131205
  Transmission Date: 20140711
  Serious: Yes (Other)
  Sender: FDA-Public Use
  Company Number: AUR-APL-2013-09893

PATIENT
  Age: 17 Year
  Sex: Female

DRUGS (3)
  1. RIBAVIRIN [Suspect]
     Indication: HEPATITIS C
     Dosage: UNKNOWN
  2. INCIVO [Suspect]
     Indication: HEPATITIS C
     Dosage: (750 MG, 1 IN 8 HR), UNKNOWN
  3. INTERFERON [Suspect]
     Indication: HEPATITIS C

REACTIONS (4)
  - Off label use [None]
  - Depression [None]
  - Fatigue [None]
  - Insomnia [None]
